FAERS Safety Report 9510985 (Version 2)
Quarter: 2013Q4

REPORT INFORMATION
  Report Type: Spontaneous
  Country: IT (occurrence: None)
  Receive Date: 20130905
  Receipt Date: 20131023
  Transmission Date: 20140711
  Serious: Yes (Death, Life-Threatening, Hospitalization, Other)
  Sender: FDA-Public Use
  Company Number: SYM-2013-10217

PATIENT
  Age: 77 Year
  Sex: Female

DRUGS (1)
  1. MESTINON [Suspect]
     Indication: MYASTHENIA GRAVIS
     Route: 048
     Dates: start: 20130101, end: 20130403

REACTIONS (10)
  - Dyspnoea [None]
  - Loss of consciousness [None]
  - Hypotension [None]
  - Stupor [None]
  - Ventricular fibrillation [None]
  - Pulseless electrical activity [None]
  - Cholinergic syndrome [None]
  - Drug abuse [None]
  - Cerebral ischaemia [None]
  - Left ventricular dysfunction [None]
